FAERS Safety Report 12073937 (Version 1)
Quarter: 2016Q1

REPORT INFORMATION
  Report Type: Spontaneous
  Country: US (occurrence: US)
  Receive Date: 20160212
  Receipt Date: 20160212
  Transmission Date: 20160526
  Serious: Yes (Hospitalization, Other)
  Sender: FDA-Public Use
  Company Number: US-MEDTRONIC-1047744

PATIENT
  Age: 34 Year
  Sex: Male

DRUGS (5)
  1. BENADRYL [Suspect]
     Active Substance: DIPHENHYDRAMINE HYDROCHLORIDE
  2. VOLTAREN [Suspect]
     Active Substance: DICLOFENAC SODIUM
  3. BUSPAR [Suspect]
     Active Substance: BUSPIRONE HYDROCHLORIDE
  4. BACLOFEN. [Suspect]
     Active Substance: BACLOFEN
     Indication: MUSCLE SPASTICITY
     Route: 037
  5. MORPHINE SULFATE. [Suspect]
     Active Substance: MORPHINE SULFATE
     Route: 037

REACTIONS (3)
  - Drug dose omission [None]
  - Abdominal rigidity [Unknown]
  - Lacrimation increased [Unknown]

NARRATIVE: CASE EVENT DATE: 20160202
